FAERS Safety Report 21177743 (Version 3)
Quarter: 2023Q1

REPORT INFORMATION
  Report Type: Spontaneous
  Country: US (occurrence: US)
  Receive Date: 20220805
  Receipt Date: 20230306
  Transmission Date: 20230418
  Serious: No
  Sender: FDA-Public Use
  Company Number: US-Albireo AB-2022ALB000179

PATIENT
  Age: 0 Year
  Sex: Male

DRUGS (4)
  1. BYLVAY [Suspect]
     Active Substance: ODEVIXIBAT
     Indication: Progressive familial intrahepatic cholestasis
     Route: 048
     Dates: start: 20220706
  2. BYLVAY [Suspect]
     Active Substance: ODEVIXIBAT
     Route: 048
  3. BYLVAY [Suspect]
     Active Substance: ODEVIXIBAT
     Route: 048
  4. URSO [Concomitant]
     Active Substance: URSODIOL
     Indication: Product used for unknown indication

REACTIONS (6)
  - Drug ineffective [Not Recovered/Not Resolved]
  - Vomiting [Unknown]
  - Product dose omission issue [Unknown]
  - Pruritus [Not Recovered/Not Resolved]
  - Diarrhoea [Not Recovered/Not Resolved]
  - Product residue present [Not Recovered/Not Resolved]

NARRATIVE: CASE EVENT DATE: 20220706
